FAERS Safety Report 16967454 (Version 1)
Quarter: 2019Q4

REPORT INFORMATION
  Report Type: Spontaneous
  Country: PR (occurrence: PR)
  Receive Date: 20191028
  Receipt Date: 20191028
  Transmission Date: 20200122
  Serious: No
  Sender: FDA-Public Use
  Company Number: PR-ABBVIE-19K-131-2903570-00

PATIENT
  Age: 58 Year
  Sex: Male

DRUGS (1)
  1. MAVYRET [Suspect]
     Active Substance: GLECAPREVIR\PIBRENTASVIR
     Indication: PRODUCT USED FOR UNKNOWN INDICATION
     Route: 048
     Dates: start: 20190717

REACTIONS (2)
  - Blood glucose increased [Unknown]
  - Proteinuria [Unknown]

NARRATIVE: CASE EVENT DATE: 2019
